FAERS Safety Report 8404835-X (Version None)
Quarter: 2012Q2

REPORT INFORMATION
  Report Type: 
  Country: None (occurrence: None)
  Receive Date: 20120601
  Receipt Date: 20120524
  Transmission Date: 20120825
  Serious: Yes (Death, Life-Threatening, Other)
  Sender: FDA-Public Use
  Company Number: US-RB-033060-11

PATIENT
  Sex: Male
  Weight: 10.1 kg

DRUGS (1)
  1. SUBOXONE [Suspect]
     Indication: ACCIDENTAL DRUG INTAKE BY CHILD
     Dosage: UNKNOWN DOSAGE AND AMOUNT OF ONE INTAKE
     Route: 048
     Dates: start: 20111013, end: 20111013

REACTIONS (8)
  - TOXICITY TO VARIOUS AGENTS [None]
  - PNEUMONIA STAPHYLOCOCCAL [None]
  - ACCIDENTAL DRUG INTAKE BY CHILD [None]
  - LOSS OF CONSCIOUSNESS [None]
  - BRONCHOPNEUMONIA [None]
  - RESPIRATORY FAILURE [None]
  - CARDIAC ARREST [None]
  - BLADDER DILATATION [None]
